FAERS Safety Report 5309892-5 (Version None)
Quarter: 2007Q2

REPORT INFORMATION
  Report Type: 
  Country: None (occurrence: None)
  Receive Date: 20070427
  Receipt Date: 20070417
  Transmission Date: 20071010
  Serious: Yes (Other)
  Sender: FDA-Public Use
  Company Number: GB-ROCHE-494319

PATIENT
  Sex: Male

DRUGS (10)
  1. CELLCEPT [Suspect]
     Indication: LUNG TRANSPLANT
     Route: 065
  2. TACROLIMUS [Concomitant]
  3. PREDNISOLONE [Concomitant]
  4. FOLIC ACID [Concomitant]
  5. DOXAZOSIN MESYLATE [Concomitant]
  6. AZITHROMYCIN [Concomitant]
  7. FUROSEMIDE [Concomitant]
  8. PRAVASTATIN [Concomitant]
  9. WARFARIN SODIUM [Concomitant]
  10. ALENDRONIC ACID [Concomitant]

REACTIONS (1)
  - APLASIA PURE RED CELL [None]
